FAERS Safety Report 4399770-0 (Version None)
Quarter: 2004Q3

REPORT INFORMATION
  Report Type: 
  Country: None (occurrence: None)
  Receive Date: 20040714
  Receipt Date: 20040630
  Transmission Date: 20050211
  Serious: Yes (Life-Threatening)
  Sender: FDA-Public Use
  Company Number: 04P-167-0265649-00

PATIENT
  Age: 39 Year
  Sex: Female

DRUGS (4)
  1. VALPROATE SODIUM [Suspect]
     Indication: BORDERLINE PERSONALITY DISORDER
     Dosage: 100 MG, 3 IN 1 D, UNKNOWN
     Route: 065
     Dates: start: 20040421, end: 20040506
  2. ZOPICLONE [Concomitant]
  3. AMITRIPTYLINE HCL [Concomitant]
  4. CITALOPRAM [Concomitant]

REACTIONS (4)
  - DIARRHOEA [None]
  - HEPATOTOXICITY [None]
  - NAUSEA [None]
  - PALLOR [None]
